FAERS Safety Report 5055237-8 (Version None)
Quarter: 2006Q3

REPORT INFORMATION
  Report Type: 
  Country: None (occurrence: None)
  Receive Date: 20060714
  Receipt Date: 20060704
  Transmission Date: 20061208
  Serious: Yes (Other)
  Sender: FDA-Public Use
  Company Number: 2006083437

PATIENT
  Sex: Male

DRUGS (3)
  1. CAMPTOSAR [Suspect]
  2. FLUOROURACIL [Concomitant]
  3. ERBITUX [Concomitant]

REACTIONS (2)
  - CORNEAL DISORDER [None]
  - TOOTH DISORDER [None]
